FAERS Safety Report 4640011-4 (Version None)
Quarter: 2005Q2

REPORT INFORMATION
  Report Type: 
  Country: None (occurrence: None)
  Receive Date: 20050420
  Receipt Date: 20050203
  Transmission Date: 20051028
  Serious: Yes (Hospitalization)
  Sender: FDA-Public Use
  Company Number: DE-SP-2005-00330

PATIENT
  Age: 74 Year
  Sex: Male

DRUGS (1)
  1. IMMUCYST [Suspect]
     Indication: BLADDER CANCER
     Route: 043
     Dates: start: 20040101

REACTIONS (6)
  - BACTERIAL INFECTION [None]
  - CYSTITIS ESCHERICHIA [None]
  - DISEASE RECURRENCE [None]
  - EPIDIDYMITIS [None]
  - INFECTION [None]
  - ORCHITIS [None]
